FAERS Safety Report 14204789 (Version 1)
Quarter: 2017Q4

REPORT INFORMATION
  Report Type: Spontaneous
  Country: US (occurrence: US)
  Receive Date: 20171118
  Receipt Date: 20171118
  Transmission Date: 20180321
  Serious: Yes (Life-Threatening, Other)
  Sender: FDA-Public Use
  Company Number: None

PATIENT
  Age: 57 Year
  Sex: Female
  Weight: 58.5 kg

DRUGS (19)
  1. IBUPROFEN. [Concomitant]
     Active Substance: IBUPROFEN
  2. COQ10 [Concomitant]
     Active Substance: UBIDECARENONE
  3. BIOTIN [Concomitant]
     Active Substance: BIOTIN
  4. IODERAL [Concomitant]
  5. LOW DOSE NALTREXONE [Concomitant]
     Active Substance: NALTREXONE
  6. MAGNESIUM [Concomitant]
     Active Substance: MAGNESIUM
  7. BITTER HERBS [Concomitant]
  8. CALCIUM/MINERALS [Concomitant]
  9. VITAMIN B COMPLEX [Concomitant]
     Active Substance: CYANOCOBALAMIN\DEXPANTHENOL\NIACINAMIDE\PYRIDOXINE HYDROCHLORIDE\RIBOFLAVIN 5^-PHOSPHATE SODIUM\THIAMINE HYDROCHLORIDE\VITAMIN B COMPLEX
  10. PREDNISONE. [Concomitant]
     Active Substance: PREDNISONE
  11. PQQ [Concomitant]
  12. RESVOXITROL [Concomitant]
  13. PROLIA [Suspect]
     Active Substance: DENOSUMAB
     Indication: OSTEOPOROSIS
     Route: 030
     Dates: start: 20161025, end: 20171117
  14. DESSICATED BEEF LIVER [Concomitant]
  15. PROBUTYRATE [Concomitant]
  16. MOTILPRO [Concomitant]
  17. NADH [Concomitant]
     Active Substance: NADH
  18. COMPOUNDED T3T4 [Concomitant]
  19. VITAMIN C [Concomitant]
     Active Substance: ASCORBIC ACID

REACTIONS (2)
  - Seizure [None]
  - Reaction to excipient [None]

NARRATIVE: CASE EVENT DATE: 20171117
